FAERS Safety Report 15627705 (Version 1)
Quarter: 2018Q4

REPORT INFORMATION
  Report Type: Spontaneous
  Country: US (occurrence: US)
  Receive Date: 20181116
  Receipt Date: 20181116
  Transmission Date: 20190205
  Serious: No
  Sender: FDA-Public Use
  Company Number: US-BAYER-2018-213656

PATIENT
  Age: 86 Year
  Sex: Male

DRUGS (2)
  1. MIRALAX [Suspect]
     Active Substance: POLYETHYLENE GLYCOL 3350
     Dosage: 2 DF, UNK
     Route: 048
     Dates: start: 201709
  2. GAS-X [Concomitant]
     Active Substance: DIMETHICONE
     Dosage: UNK

REACTIONS (3)
  - Product use issue [Unknown]
  - Product prescribing issue [Unknown]
  - Flatulence [Unknown]

NARRATIVE: CASE EVENT DATE: 201709
